FAERS Safety Report 20915859 (Version 3)
Quarter: 2023Q4

REPORT INFORMATION
  Report Type: Spontaneous
  Country: US (occurrence: US)
  Receive Date: 20220604
  Receipt Date: 20231209
  Transmission Date: 20240110
  Serious: No
  Sender: FDA-Public Use
  Company Number: US-SA-SAC20220530000254

PATIENT
  Age: 29 Year
  Sex: Male

DRUGS (1)
  1. DUPIXENT [Suspect]
     Active Substance: DUPILUMAB
     Indication: Dermatitis atopic
     Dosage: 300 MG, QOW
     Route: 058
     Dates: start: 202204

REACTIONS (8)
  - Conjunctivitis [Unknown]
  - Periorbital swelling [Unknown]
  - Eye discharge [Unknown]
  - Dermatitis atopic [Recovering/Resolving]
  - Erythema [Unknown]
  - Rash [Recovering/Resolving]
  - Sensitive skin [Recovering/Resolving]
  - Rash macular [Recovering/Resolving]

NARRATIVE: CASE EVENT DATE: 20220501
